FAERS Safety Report 5206048-1 (Version None)
Quarter: 2007Q1

REPORT INFORMATION
  Report Type: 
  Country: None (occurrence: None)
  Receive Date: 20070105
  Receipt Date: 20070105
  Transmission Date: 20070707
  Serious: Yes (Hospitalization)
  Sender: FDA-Public Use
  Company Number: None

PATIENT
  Age: 62 Year
  Sex: Male
  Weight: 98.6 kg

DRUGS (9)
  1. COUMADIN [Suspect]
     Indication: ATRIAL FIBRILLATION
     Dosage: 3MG PO QD
     Route: 048
     Dates: start: 20060907, end: 20060914
  2. AMIODARONE HCL [Concomitant]
  3. CARVEDILOL [Concomitant]
  4. DIGOXIN [Concomitant]
  5. ESCITALOPRAM OXALATE [Concomitant]
  6. FUROSEMIDE [Concomitant]
  7. POTASSIUM ACETATE [Concomitant]
  8. SPIRONOLACTONE [Concomitant]
  9. RAMIPRIL [Concomitant]

REACTIONS (3)
  - ARTHRALGIA [None]
  - GROIN PAIN [None]
  - RETROPERITONEAL HAEMATOMA [None]
